FAERS Safety Report 8463846-9 (Version None)
Quarter: 2012Q2

REPORT INFORMATION
  Report Type: 
  Country: None (occurrence: None)
  Receive Date: 20120625
  Receipt Date: 20120615
  Transmission Date: 20120825
  Serious: Yes (Death, Life-Threatening, Hospitalization, Other)
  Sender: FDA-Public Use
  Company Number: US-MYLANLABS-2010AC000364

PATIENT
  Sex: Female

DRUGS (1)
  1. DIGOXIN [Suspect]
     Route: 048
     Dates: start: 20040501, end: 20071201

REACTIONS (9)
  - DEATH [None]
  - ILL-DEFINED DISORDER [None]
  - PAIN [None]
  - INJURY [None]
  - EMOTIONAL DISTRESS [None]
  - ECONOMIC PROBLEM [None]
  - CARDIO-RESPIRATORY ARREST [None]
  - SEPTIC SHOCK [None]
  - RESPIRATORY FAILURE [None]
